FAERS Safety Report 13509710 (Version 2)
Quarter: 2017Q3

REPORT INFORMATION
  Report Type: Spontaneous
  Country: US (occurrence: US)
  Receive Date: 20170503
  Receipt Date: 20170803
  Transmission Date: 20171127
  Serious: No
  Sender: FDA-Public Use
  Company Number: US-SA-2017SA071103

PATIENT
  Age: 64 Year
  Sex: Male

DRUGS (2)
  1. PRALUENT [Suspect]
     Active Substance: ALIROCUMAB
     Route: 058
     Dates: start: 20170214, end: 20170424
  2. ALIROCUMAB PREFILLED PEN [Concomitant]
     Active Substance: ALIROCUMAB
     Dates: start: 20170214, end: 20170424

REACTIONS (5)
  - Fatigue [Unknown]
  - Back pain [Unknown]
  - Injection site rash [Unknown]
  - Injection site bruising [Unknown]
  - Pain [Unknown]

NARRATIVE: CASE EVENT DATE: 20170415
